FAERS Safety Report 11471009 (Version 2)
Quarter: 2015Q3

REPORT INFORMATION
  Report Type: Spontaneous
  Country: US (occurrence: US)
  Receive Date: 20150903
  Receipt Date: 20150903
  Transmission Date: 20151125
  Serious: No
  Sender: FDA-Public Use
  Company Number: US-ELI_LILLY_AND_COMPANY-US201109005627

PATIENT
  Age: 80 Year
  Sex: Female

DRUGS (1)
  1. CYMBALTA [Suspect]
     Active Substance: DULOXETINE HYDROCHLORIDE
     Indication: DEPRESSION
     Dosage: UNK, UNKNOWN
     Dates: start: 201109

REACTIONS (9)
  - Hypersomnia [Unknown]
  - Decreased appetite [Unknown]
  - Weight decreased [Unknown]
  - Mental disorder [Unknown]
  - Somnolence [Unknown]
  - Tremor [Unknown]
  - Drug ineffective [Unknown]
  - Dizziness [Unknown]
  - Hyponatraemia [Unknown]
